FAERS Safety Report 5319708-9 (Version None)
Quarter: 2007Q2

REPORT INFORMATION
  Report Type: 
  Country: None (occurrence: None)
  Receive Date: 20070503
  Receipt Date: 20070418
  Transmission Date: 20071010
  Serious: Yes (Death)
  Sender: FDA-Public Use
  Company Number: 155748ISR

PATIENT
  Sex: Male

DRUGS (2)
  1. AMOXICILLIN + CLAVULANATE POTASSIUM [Suspect]
     Indication: LOWER RESPIRATORY TRACT INFECTION
     Dosage: SEE IMAGE
     Dates: start: 20070110, end: 20070116
  2. AMOXICILLIN + CLAVULANATE POTASSIUM [Suspect]
     Indication: LOWER RESPIRATORY TRACT INFECTION
     Dosage: SEE IMAGE
     Dates: start: 20070108

REACTIONS (5)
  - ASTHENIA [None]
  - DIARRHOEA [None]
  - LETHARGY [None]
  - ORAL INTAKE REDUCED [None]
  - RENAL IMPAIRMENT [None]
